FAERS Safety Report 18604067 (Version 1)
Quarter: 2020Q4

REPORT INFORMATION
  Report Type: Spontaneous
  Country: FR (occurrence: FR)
  Receive Date: 20201211
  Receipt Date: 20201211
  Transmission Date: 20210114
  Serious: Yes (Other)
  Sender: FDA-Public Use
  Company Number: FR-DRREDDYS-GER/FRA/20/0129768

PATIENT
  Age: 33 Year
  Sex: Female

DRUGS (5)
  1. ATROPINE. [Suspect]
     Active Substance: ATROPINE
     Indication: TOXICITY TO VARIOUS AGENTS
     Dosage: 10 MILLIGRAM
     Route: 065
  2. DIGIFAB [Suspect]
     Active Substance: OVINE DIGOXIN IMMUNE FAB
     Indication: TOXICITY TO VARIOUS AGENTS
     Dosage: 160 MILLIGRAM
     Route: 065
  3. CHARCOAL [Suspect]
     Active Substance: ACTIVATED CHARCOAL
     Indication: TOXICITY TO VARIOUS AGENTS
     Dosage: 50 GRAM
     Route: 065
  4. METOCLOPRAMIDE. [Suspect]
     Active Substance: METOCLOPRAMIDE
     Indication: TOXICITY TO VARIOUS AGENTS
     Dosage: 10 MILLIGRAM
     Route: 065
  5. FONDAPARINUX [Suspect]
     Active Substance: FONDAPARINUX
     Indication: TOXICITY TO VARIOUS AGENTS
     Dosage: 0.5 MILLIGRAM
     Route: 065

REACTIONS (3)
  - Off label use [Unknown]
  - Thrombocytopenia [Recovered/Resolved]
  - Bradycardia [Recovered/Resolved]
